FAERS Safety Report 21046697 (Version 2)
Quarter: 2023Q1

REPORT INFORMATION
  Report Type: Spontaneous
  Country: US (occurrence: None)
  Receive Date: 20220706
  Receipt Date: 20230331
  Transmission Date: 20230417
  Serious: Yes (Other)
  Sender: FDA-Public Use
  Company Number: US-ROCHE-3126606

PATIENT
  Sex: Male

DRUGS (2)
  1. VABYSMO [Suspect]
     Active Substance: FARICIMAB-SVOA
     Indication: Macular degeneration
     Dosage: UNKNOWN
     Route: 065
  2. EYLEA [Concomitant]
     Active Substance: AFLIBERCEPT
     Dosage: EVERY 4 - 6 WEEKS
     Route: 065

REACTIONS (5)
  - Blindness [Unknown]
  - Retinal depigmentation [Unknown]
  - Subretinal fibrosis [Unknown]
  - Detachment of retinal pigment epithelium [Recovered/Resolved]
  - Macular degeneration [Unknown]
